FAERS Safety Report 8932750 (Version 1)
Quarter: 2012Q4

REPORT INFORMATION
  Report Type: 
  Country: BR (occurrence: BR)
  Receive Date: 20121129
  Receipt Date: 20121129
  Transmission Date: 20130627
  Serious: Yes (Other)
  Sender: FDA-Public Use
  Company Number: BR-JNJFOC-20121111857

PATIENT
  Sex: Female

DRUGS (2)
  1. REMINYL ER [Suspect]
     Indication: DEMENTIA WITH LEWY BODIES
     Route: 050
     Dates: start: 2012
  2. REMINYL ER [Suspect]
     Indication: DEMENTIA WITH LEWY BODIES
     Route: 050

REACTIONS (2)
  - Condition aggravated [Not Recovered/Not Resolved]
  - Wrong technique in drug usage process [Not Recovered/Not Resolved]
